FAERS Safety Report 24993134 (Version 1)
Quarter: 2025Q1

REPORT INFORMATION
  Report Type: Report from Study
  Country: CO (occurrence: CO)
  Receive Date: 20250221
  Receipt Date: 20250221
  Transmission Date: 20250409
  Serious: Yes (Hospitalization, Other)
  Sender: JOHNSON AND JOHNSON
  Company Number: CO-JNJFOC-20250234801

PATIENT
  Age: 53 Year
  Sex: Male
  Weight: 71 kg

DRUGS (6)
  1. SIMPONI [Suspect]
     Active Substance: GOLIMUMAB
     Indication: Ankylosing spondylitis
     Route: 058
     Dates: start: 20240221
  2. SULFASALAZINE [Concomitant]
     Active Substance: SULFASALAZINE
  3. PREDNISOLONE [Concomitant]
     Active Substance: PREDNISOLONE
  4. DULOXETINE [Concomitant]
     Active Substance: DULOXETINE
  5. ACETAMINOPHEN\TRAMADOL HYDROCHLORIDE [Concomitant]
     Active Substance: ACETAMINOPHEN\TRAMADOL HYDROCHLORIDE
  6. MESALAMINE [Concomitant]
     Active Substance: MESALAMINE

REACTIONS (2)
  - Subcutaneous abscess [Not Recovered/Not Resolved]
  - Post procedural infection [Unknown]

NARRATIVE: CASE EVENT DATE: 20250127
